FAERS Safety Report 8468923 (Version 4)
Quarter: 2012Q4

REPORT INFORMATION
  Report Type: Report from Study
  Country: FR (occurrence: FR)
  Receive Date: 20120321
  Receipt Date: 20121001
  Transmission Date: 20130627
  Serious: Yes (Hospitalization)
  Sender: FDA-Public Use
  Company Number: FR-ROCHE-1047878

PATIENT
  Age: 65 Year
  Sex: Female
  Weight: 74 kg

DRUGS (14)
  1. ROACTEMRA [Suspect]
     Indication: RHEUMATOID ARTHRITIS
     Dosage: 8 mg/kg
     Route: 065
     Dates: start: 20120228
  2. ROACTEMRA [Suspect]
     Route: 065
     Dates: start: 20120327
  3. ROACTEMRA [Suspect]
     Route: 065
     Dates: start: 20120424
  4. METHOTREXATE [Concomitant]
     Dosage: 2.5 mg
     Route: 065
  5. METHOTREXATE [Concomitant]
     Dosage: 5 tablet
     Route: 065
  6. METHOTREXATE [Concomitant]
     Route: 065
  7. SPECIAFOLDINE [Concomitant]
     Route: 065
  8. SOLUPRED (FRANCE) [Concomitant]
     Route: 065
  9. ATENOLOL [Concomitant]
     Route: 065
  10. ZANIDIP [Concomitant]
     Route: 065
  11. INEXIUM [Concomitant]
     Route: 065
  12. EFFERALGAN [Concomitant]
     Route: 065
  13. ATENOLOL [Concomitant]
     Route: 065
  14. INEXIUM [Concomitant]
     Route: 065

REACTIONS (2)
  - Pulmonary embolism [Recovered/Resolved]
  - Dyspnoea [Not Recovered/Not Resolved]
